FAERS Safety Report 8238965 (Version 3)
Quarter: 2014Q4

REPORT INFORMATION
  Report Type: Spontaneous
  Country: US (occurrence: None)
  Receive Date: 20111103
  Receipt Date: 20141010
  Transmission Date: 20150529
  Serious: Yes (Other)
  Sender: FDA-Public Use
  Company Number: ADR-2011-11220

PATIENT
  Sex: Male

DRUGS (1)
  1. BACLOFEN INTRATHECAL [Suspect]
     Active Substance: BACLOFEN
     Indication: MUSCLE SPASTICITY
     Dosage: MCG, DAILY, INTRATH
     Route: 037

REACTIONS (12)
  - Hallucination, visual [None]
  - Infusion site reaction [None]
  - No therapeutic response [None]
  - Implant site inflammation [None]
  - Mental disorder [None]
  - Abdominal distension [None]
  - Seroma [None]
  - Implant site extravasation [None]
  - Flatulence [None]
  - Underdose [None]
  - Condition aggravated [None]
  - Muscle spasticity [None]
